FAERS Safety Report 18118756 (Version 1)
Quarter: 2020Q3

REPORT INFORMATION
  Report Type: Spontaneous
  Country: SK (occurrence: SK)
  Receive Date: 20200806
  Receipt Date: 20200806
  Transmission Date: 20201103
  Serious: Yes (Other)
  Sender: FDA-Public Use
  Company Number: SK-ABBVIE-20K-260-3514496-00

PATIENT
  Age: 78 Year
  Sex: Female

DRUGS (1)
  1. IMBRUVICA [Suspect]
     Active Substance: IBRUTINIB
     Indication: CHRONIC LYMPHOCYTIC LEUKAEMIA
     Route: 048
     Dates: start: 201905

REACTIONS (4)
  - Leukocytosis [Recovered/Resolved]
  - Leukopenia [Unknown]
  - Neutropenia [Unknown]
  - Lymphocytosis [Recovered/Resolved]
